FAERS Safety Report 16937177 (Version 1)
Quarter: 2019Q4

REPORT INFORMATION
  Report Type: Spontaneous
  Country: US (occurrence: US)
  Receive Date: 20191018
  Receipt Date: 20191018
  Transmission Date: 20200122
  Serious: Yes (Death, Other)
  Sender: FDA-Public Use
  Company Number: US-GLAXOSMITHKLINE-US2019GSK188251

PATIENT
  Age: 21 Year
  Sex: Female

DRUGS (4)
  1. LAMOTRIGINE. [Suspect]
     Active Substance: LAMOTRIGINE
     Indication: SEIZURE
     Dosage: UNK
     Route: 065
  2. LEVETIRACETAM. [Concomitant]
     Active Substance: LEVETIRACETAM
     Indication: PRODUCT USED FOR UNKNOWN INDICATION
     Dosage: UNK
     Route: 065
  3. PHENOBARBITAL. [Concomitant]
     Active Substance: PHENOBARBITAL
     Indication: PRODUCT USED FOR UNKNOWN INDICATION
     Dosage: UNK
     Route: 065
  4. PHENYTOIN. [Suspect]
     Active Substance: PHENYTOIN
     Indication: SEIZURE
     Dosage: UNK
     Route: 065

REACTIONS (24)
  - Cachexia [Unknown]
  - Diarrhoea [Unknown]
  - Rash [Unknown]
  - Large intestinal ulcer [Unknown]
  - Abdominal pain [Unknown]
  - Nausea [Unknown]
  - Serum ferritin increased [Unknown]
  - Enterocolitis [Unknown]
  - Enteritis [Unknown]
  - Multiple organ dysfunction syndrome [Fatal]
  - Haemophagocytic lymphohistiocytosis [Fatal]
  - Thrombocytopenia [Unknown]
  - Gastrointestinal disorder [Unknown]
  - Colitis [Unknown]
  - Malabsorption [Unknown]
  - Drug reaction with eosinophilia and systemic symptoms [Unknown]
  - Cytopenia [Unknown]
  - Duodenal ulcer haemorrhage [Unknown]
  - Pyrexia [Unknown]
  - Hepatitis [Unknown]
  - Pancreatitis [Unknown]
  - Rectal ulcer [Unknown]
  - Vomiting [Unknown]
  - Malnutrition [Unknown]
